FAERS Safety Report 26062753 (Version 1)
Quarter: 2025Q4

REPORT INFORMATION
  Report Type: Spontaneous
  Country: CN (occurrence: CN)
  Receive Date: 20251119
  Receipt Date: 20251119
  Transmission Date: 20260118
  Serious: Yes (Other)
  Sender: ALCON
  Company Number: CN-ALCON LABORATORIES-ALC2025CN006578

PATIENT
  Age: 31 Year
  Sex: Male
  Weight: 60 kg

DRUGS (1)
  1. FLUORESCITE [Suspect]
     Active Substance: FLUORESCEIN SODIUM
     Indication: Angiogram retina
     Dosage: 3 ML, QD
     Route: 042
     Dates: start: 20251105, end: 20251105

REACTIONS (6)
  - Flushing [Recovering/Resolving]
  - Pruritus [Recovering/Resolving]
  - Conjunctival hyperaemia [Recovering/Resolving]
  - Hypoaesthesia oral [Recovering/Resolving]
  - Hypotension [Recovering/Resolving]
  - Urticaria [Recovering/Resolving]

NARRATIVE: CASE EVENT DATE: 20251105
